FAERS Safety Report 17510144 (Version 3)
Quarter: 2021Q2

REPORT INFORMATION
  Report Type: Spontaneous
  Country: US (occurrence: US)
  Receive Date: 20200306
  Receipt Date: 20210405
  Transmission Date: 20210716
  Serious: Yes (Other)
  Sender: FDA-Public Use
  Company Number: US-PFIZER INC-2020099708

PATIENT
  Age: 60 Year
  Sex: Female

DRUGS (2)
  1. FEXOFENADINE HCL [Concomitant]
     Active Substance: FEXOFENADINE HYDROCHLORIDE
     Dosage: 180 MG
  2. XELJANZ XR [Suspect]
     Active Substance: TOFACITINIB CITRATE
     Indication: RHEUMATOID ARTHRITIS
     Dosage: 11 MG, DAILY
     Route: 048

REACTIONS (5)
  - Sinusitis bacterial [Unknown]
  - Confusional state [Unknown]
  - Memory impairment [Unknown]
  - Blood cholesterol increased [Unknown]
  - Product dose omission issue [Unknown]
